FAERS Safety Report 13233212 (Version 3)
Quarter: 2017Q1

REPORT INFORMATION
  Report Type: Report from Study
  Country: None (occurrence: CA)
  Receive Date: 20170215
  Receipt Date: 20170224
  Transmission Date: 20170428
  Serious: Yes (Hospitalization, Congenital Anomaly, Other)
  Sender: FDA-Public Use
  Company Number: CA-ABBVIE-17K-028-1867975-00

PATIENT
  Age: 59 Year
  Sex: Male
  Weight: 68.1 kg

DRUGS (5)
  1. HUMIRA [Suspect]
     Active Substance: ADALIMUMAB
     Route: 058
     Dates: start: 2016, end: 2016
  2. HUMIRA [Suspect]
     Active Substance: ADALIMUMAB
     Route: 058
     Dates: start: 201607
  3. AMOXICILLIN. [Suspect]
     Active Substance: AMOXICILLIN
     Indication: PRODUCT USED FOR UNKNOWN INDICATION
     Route: 065
  4. HUMIRA [Suspect]
     Active Substance: ADALIMUMAB
     Indication: PSORIATIC ARTHROPATHY
     Route: 058
     Dates: start: 20080403, end: 2016
  5. PENICILLIN [Suspect]
     Active Substance: PENICILLIN
     Indication: PRODUCT USED FOR UNKNOWN INDICATION
     Route: 065

REACTIONS (14)
  - Post procedural complication [Unknown]
  - Internal haemorrhage [Not Recovered/Not Resolved]
  - Drug hypersensitivity [Unknown]
  - Dermatitis allergic [Unknown]
  - Blood pressure decreased [Recovered/Resolved]
  - Nerve compression [Not Recovered/Not Resolved]
  - Hip arthroplasty [Unknown]
  - Psoriatic arthropathy [Unknown]
  - Blood pressure increased [Unknown]
  - Vena cava filter insertion [Unknown]
  - Thrombosis [Not Recovered/Not Resolved]
  - Peripheral nerve injury [Not Recovered/Not Resolved]
  - Dermatitis exfoliative [Recovered/Resolved]
  - Incision site infection [Unknown]

NARRATIVE: CASE EVENT DATE: 2016
